FAERS Safety Report 21883586 (Version 2)
Quarter: 2023Q2

REPORT INFORMATION
  Report Type: Report from Study
  Country: US (occurrence: US)
  Receive Date: 20230119
  Receipt Date: 20230414
  Transmission Date: 20230721
  Serious: No
  Sender: FDA-Public Use
  Company Number: US-ABBVIE-4242331

PATIENT
  Age: 47 Year
  Sex: Male

DRUGS (2)
  1. SKYRIZI [Suspect]
     Active Substance: RISANKIZUMAB-RZAA
     Indication: Psoriasis
     Dosage: FREQUENCY TEXT: WEEK  0, WEEK 4, EVERY 12 WEEKS THEREAFTER ONCE
     Route: 058
     Dates: start: 202211
  2. SKYRIZI [Suspect]
     Active Substance: RISANKIZUMAB-RZAA
     Dosage: WEEK 0, ONE IN ONCE
     Route: 058
     Dates: start: 20221018, end: 20221018

REACTIONS (7)
  - Erythema [Recovered/Resolved]
  - Dry skin [Unknown]
  - Pain [Recovered/Resolved]
  - COVID-19 [Not Recovered/Not Resolved]
  - Burning sensation [Recovered/Resolved]
  - Pain of skin [Unknown]
  - Pruritus [Recovered/Resolved]

NARRATIVE: CASE EVENT DATE: 20230301
